FAERS Safety Report 19424498 (Version 3)
Quarter: 2021Q3

REPORT INFORMATION
  Report Type: Spontaneous
  Country: US (occurrence: US)
  Receive Date: 20210616
  Receipt Date: 20210716
  Transmission Date: 20211014
  Serious: Yes (Hospitalization)
  Sender: FDA-Public Use
  Company Number: US-SK LIFE SCIENCE, INC-SKPVG-2021-000361

PATIENT

DRUGS (3)
  1. XCOPRI [Suspect]
     Active Substance: CENOBAMATE
     Indication: EPILEPSY
     Dosage: 100 MILLIGRAM
     Route: 048
  2. XCOPRI [Suspect]
     Active Substance: CENOBAMATE
     Indication: GENERALISED TONIC-CLONIC SEIZURE
     Dosage: 200 MILLIGRAM, QD
     Route: 048
     Dates: start: 202102
  3. XCOPRI [Suspect]
     Active Substance: CENOBAMATE
     Indication: SEIZURE
     Dosage: 150 MILLIGRAM, QD
     Route: 048

REACTIONS (11)
  - Impaired quality of life [Unknown]
  - Asthenia [Unknown]
  - Seizure [Not Recovered/Not Resolved]
  - Feeling abnormal [Unknown]
  - Reading disorder [Unknown]
  - Product dose omission issue [Recovered/Resolved]
  - Speech disorder [Unknown]
  - Communication disorder [Unknown]
  - Thinking abnormal [Unknown]
  - Fatigue [Unknown]
  - Performance status decreased [Unknown]
